FAERS Safety Report 9319736 (Version 1)
Quarter: 2013Q2

REPORT INFORMATION
  Report Type: Spontaneous
  Country: US (occurrence: None)
  Receive Date: 20130529
  Receipt Date: 20130529
  Transmission Date: 20140414
  Serious: Yes (Other)
  Sender: FDA-Public Use
  Company Number: None

PATIENT
  Age: 74 Year
  Sex: Male
  Weight: 58.97 kg

DRUGS (1)
  1. REGLIN [Suspect]
     Indication: DYSPEPSIA

REACTIONS (8)
  - Weight decreased [None]
  - Fall [None]
  - Flat affect [None]
  - Aspiration [None]
  - Rectal haemorrhage [None]
  - Tremor [None]
  - Delusion [None]
  - Speech disorder [None]
